FAERS Safety Report 10558990 (Version 1)
Quarter: 2014Q4

REPORT INFORMATION
  Report Type: Report from Study
  Country: GB (occurrence: GB)
  Receive Date: 20141103
  Receipt Date: 20141103
  Transmission Date: 20150529
  Serious: Yes (Other)
  Sender: FDA-Public Use
  Company Number: PHFR2014GB007449

PATIENT
  Age: 67 Year

DRUGS (2)
  1. MMF [Concomitant]
     Indication: LIVER TRANSPLANT
     Route: 065
  2. TACROLIMUS. [Suspect]
     Active Substance: TACROLIMUS
     Indication: LIVER TRANSPLANT
     Route: 065

REACTIONS (3)
  - Adrenoleukodystrophy [Unknown]
  - Diabetes mellitus [Unknown]
  - Renal impairment [Unknown]
